FAERS Safety Report 5571783-2 (Version None)
Quarter: 2007Q4

REPORT INFORMATION
  Report Type: 
  Country: None (occurrence: None)
  Receive Date: 20071221
  Receipt Date: 20071218
  Transmission Date: 20080405
  Serious: Yes (Hospitalization)
  Sender: FDA-Public Use
  Company Number: B0500096A

PATIENT
  Age: 18 Day
  Sex: Female

DRUGS (14)
  1. FLIXOTIDE [Suspect]
     Indication: DRUG USE FOR UNKNOWN INDICATION
     Route: 055
     Dates: start: 20071024
  2. VENTOLIN [Suspect]
     Indication: DRUG USE FOR UNKNOWN INDICATION
     Route: 055
     Dates: start: 20071024
  3. CLAMOXYL IV [Suspect]
     Indication: INFECTION
     Route: 042
     Dates: start: 20071025, end: 20071104
  4. PERFALGAN [Suspect]
     Indication: DRUG USE FOR UNKNOWN INDICATION
     Dosage: 14.8MG PER DAY
     Route: 042
     Dates: start: 20071027
  5. FENTANYL [Suspect]
     Indication: DRUG USE FOR UNKNOWN INDICATION
     Route: 042
     Dates: start: 20071105, end: 20071120
  6. L THYROXINE [Suspect]
     Indication: DRUG USE FOR UNKNOWN INDICATION
     Route: 048
     Dates: start: 20071031
  7. VANCOMYCIN [Suspect]
     Indication: DRUG USE FOR UNKNOWN INDICATION
     Route: 042
     Dates: start: 20071106
  8. AMIKACIN [Suspect]
     Indication: DRUG USE FOR UNKNOWN INDICATION
     Route: 042
     Dates: start: 20071106, end: 20071108
  9. PIPERACILLIN [Suspect]
     Indication: DRUG USE FOR UNKNOWN INDICATION
     Route: 042
     Dates: start: 20071106, end: 20071109
  10. CLAFORAN [Suspect]
     Indication: DRUG USE FOR UNKNOWN INDICATION
     Route: 042
     Dates: start: 20071025, end: 20071104
  11. CAFEINE [Suspect]
     Indication: DRUG USE FOR UNKNOWN INDICATION
     Route: 042
     Dates: start: 20071105, end: 20071120
  12. INTUBATION [Concomitant]
  13. SEDATION [Concomitant]
  14. MECHANICAL VENTILATION [Concomitant]

REACTIONS (2)
  - PULMONARY HYPERTENSION [None]
  - THROMBOCYTOPENIA [None]
